FAERS Safety Report 10208979 (Version 1)
Quarter: 2014Q2

REPORT INFORMATION
  Report Type: Spontaneous
  Country: DK (occurrence: DK)
  Receive Date: 20140530
  Receipt Date: 20140530
  Transmission Date: 20141212
  Serious: Yes (Hospitalization)
  Sender: FDA-Public Use
  Company Number: PHHY2014DK062131

PATIENT
  Age: 65 Year
  Sex: Female
  Weight: 73 kg

DRUGS (1)
  1. BIOCLAVID [Suspect]
     Indication: LOCALISED INFECTION
     Dosage: 1 DF, TID
     Route: 048
     Dates: start: 20131106, end: 20131207

REACTIONS (5)
  - Ocular icterus [Unknown]
  - Chromaturia [Unknown]
  - Faeces pale [Unknown]
  - Cholestasis [Recovered/Resolved]
  - Abdominal pain [Unknown]
